FAERS Safety Report 25704304 (Version 1)
Quarter: 2025Q3

REPORT INFORMATION
  Report Type: Report from Study
  Country: US (occurrence: US)
  Receive Date: 20250820
  Receipt Date: 20250820
  Transmission Date: 20251020
  Serious: Yes (Other)
  Sender: EMD SERONO INC
  Company Number: US-Merck Healthcare KGaA-2025040266

PATIENT
  Age: 41 Year
  Sex: Male

DRUGS (2)
  1. SEROSTIM [Suspect]
     Active Substance: SOMATROPIN
     Indication: Product used for unknown indication
  2. TESTOSTERONE [Suspect]
     Active Substance: TESTOSTERONE
     Indication: Product used for unknown indication

REACTIONS (6)
  - Back injury [Unknown]
  - Weight increased [Unknown]
  - T-lymphocyte count increased [Unknown]
  - T-lymphocyte count decreased [Unknown]
  - Stress [Unknown]
  - Anxiety [Unknown]
